FAERS Safety Report 23782198 (Version 1)
Quarter: 2024Q2

REPORT INFORMATION
  Report Type: Spontaneous
  Country: TR (occurrence: TR)
  Receive Date: 20240425
  Receipt Date: 20240425
  Transmission Date: 20240716
  Serious: Yes (Hospitalization, Other)
  Sender: FDA-Public Use
  Company Number: TR-JNJFOC-20240464776

PATIENT
  Age: 33 Year
  Sex: Male

DRUGS (8)
  1. PALIPERIDONE PALMITATE [Suspect]
     Active Substance: PALIPERIDONE PALMITATE
     Indication: Schizophrenia
     Route: 030
  2. PALIPERIDONE PALMITATE [Suspect]
     Active Substance: PALIPERIDONE PALMITATE
  3. PALIPERIDONE PALMITATE [Suspect]
     Active Substance: PALIPERIDONE PALMITATE
  4. PALIPERIDONE PALMITATE [Suspect]
     Active Substance: PALIPERIDONE PALMITATE
     Indication: Schizophrenia
     Route: 030
  5. PALIPERIDONE PALMITATE [Suspect]
     Active Substance: PALIPERIDONE PALMITATE
  6. PALIPERIDONE PALMITATE [Suspect]
     Active Substance: PALIPERIDONE PALMITATE
  7. OLANZAPINE [Concomitant]
     Active Substance: OLANZAPINE
     Route: 065
  8. ARIPIPRAZOLE [Concomitant]
     Active Substance: ARIPIPRAZOLE
     Route: 065

REACTIONS (18)
  - Insomnia [Recovering/Resolving]
  - Thinking abnormal [Recovering/Resolving]
  - Hallucination, auditory [Recovering/Resolving]
  - Loss of personal independence in daily activities [Recovering/Resolving]
  - Psychotic symptom [Recovering/Resolving]
  - Delusion of reference [Recovering/Resolving]
  - Delusion of grandeur [Recovering/Resolving]
  - Vitamin B12 deficiency [Recovering/Resolving]
  - Vitamin D deficiency [Recovering/Resolving]
  - Libido decreased [Recovering/Resolving]
  - Obsessive thoughts [Recovering/Resolving]
  - Irritability [Recovering/Resolving]
  - Manipulation [Recovering/Resolving]
  - Abnormal behaviour [Recovering/Resolving]
  - Persecutory delusion [Recovering/Resolving]
  - Marital problem [Recovering/Resolving]
  - Discomfort [Recovering/Resolving]
  - Treatment noncompliance [Recovered/Resolved]

NARRATIVE: CASE EVENT DATE: 20170301
